FAERS Safety Report 10429497 (Version 8)
Quarter: 2015Q2

REPORT INFORMATION
  Report Type: Spontaneous
  Country: US (occurrence: US)
  Receive Date: 20140904
  Receipt Date: 20150427
  Transmission Date: 20150821
  Serious: Yes (Hospitalization, Other)
  Sender: FDA-Public Use
  Company Number: US-JNJFOC-20140900647

PATIENT
  Age: 19 Year
  Sex: Male
  Weight: 91.63 kg

DRUGS (3)
  1. TYLENOL EXTRA STRENGTH [Suspect]
     Active Substance: ACETAMINOPHEN
     Indication: ANALGESIC THERAPY
     Dosage: DAILY BASIS APPROXIMATELY 4 DAYS BEFORE EXPERIENCING THE ACUTE LIVER FAILURE
     Route: 048
     Dates: start: 201205, end: 201205
  2. TYLENOL EXTRA STRENGTH [Suspect]
     Active Substance: ACETAMINOPHEN
     Indication: INFLUENZA LIKE ILLNESS
     Dosage: DAILY BASIS APPROXIMATELY 4 DAYS BEFORE EXPERIENCING THE ACUTE LIVER FAILURE
     Route: 048
     Dates: start: 201205, end: 201205
  3. TYLENOL REGULAR STRENGTH [Suspect]
     Active Substance: ACETAMINOPHEN
     Indication: INFLUENZA LIKE ILLNESS
     Route: 048
     Dates: start: 201205, end: 201205

REACTIONS (6)
  - Acute hepatic failure [Recovered/Resolved]
  - Metabolic acidosis [Unknown]
  - Overdose [Unknown]
  - Acute kidney injury [Unknown]
  - Hepatic encephalopathy [Unknown]
  - Lactic acidosis [Unknown]

NARRATIVE: CASE EVENT DATE: 201205
